FAERS Safety Report 6139831-9 (Version None)
Quarter: 2009Q1

REPORT INFORMATION
  Report Type: 
  Country: None (occurrence: None)
  Receive Date: 20090324
  Receipt Date: 20090325
  Transmission Date: 20090719
  Serious: Yes (Hospitalization)
  Sender: FDA-Public Use
  Company Number: FRP09000294

PATIENT
  Age: 63 Year
  Sex: Female

DRUGS (5)
  1. ACTONEL [Suspect]
     Indication: OSTEOPOROSIS
     Dosage: 35 MG, 1/WEEK, ORAL
     Route: 048
     Dates: end: 20090203
  2. SULFASALAZINE [Suspect]
     Indication: POLYARTHRITIS
     Dosage: 2 G, DAILY, ORAL
     Route: 048
     Dates: end: 20090203
  3. ACETAMINOPHEN [Suspect]
     Indication: ARTHRALGIA
     Dosage: 1 G, 2/DAY, ORAL
     Route: 048
     Dates: start: 20000101, end: 20090203
  4. UNKNOWN [Concomitant]
  5. PANTOPRAZOLE SODIUM [Concomitant]

REACTIONS (4)
  - AGRANULOCYTOSIS [None]
  - COOMBS POSITIVE HAEMOLYTIC ANAEMIA [None]
  - PYREXIA [None]
  - TONSILLITIS [None]
